FAERS Safety Report 8646866 (Version 2)
Quarter: 2012Q4

REPORT INFORMATION
  Report Type: 
  Country: US (occurrence: US)
  Receive Date: 20120703
  Receipt Date: 20121105
  Transmission Date: 20130627
  Serious: Yes (Hospitalization)
  Sender: FDA-Public Use
  Company Number: US-BAYER-2012-064298

PATIENT
  Age: 37 Year
  Sex: Female

DRUGS (5)
  1. YAZ [Suspect]
     Indication: CONTRACEPTION
     Dosage: UNK
     Dates: start: 20070427, end: 200801
  2. YAZ [Suspect]
     Indication: CONTRACEPTION
     Dosage: UNK
     Dates: start: 20080818, end: 200908
  3. LIPITOR [Concomitant]
     Dosage: UNK
     Route: 048
     Dates: start: 20090319
  4. OMEPRAZOLE [Concomitant]
     Dosage: UNK
     Route: 048
     Dates: start: 20090319
  5. TYLENOL #3 [Concomitant]
     Dosage: UNK
     Route: 048
     Dates: start: 20090319

REACTIONS (7)
  - Cholelithiasis [None]
  - Cholecystitis chronic [None]
  - Gallbladder enlargement [None]
  - Pain [None]
  - Abdominal pain [None]
  - Gastrooesophageal reflux disease [None]
  - Gallbladder obstruction [None]
